FAERS Safety Report 26061995 (Version 1)
Quarter: 2025Q4

REPORT INFORMATION
  Report Type: Spontaneous
  Country: CN (occurrence: CN)
  Receive Date: 20251119
  Receipt Date: 20251119
  Transmission Date: 20260117
  Serious: Yes (Hospitalization, Other)
  Sender: ABBVIE
  Company Number: CN-LUNDBECK-DKLU4021729

PATIENT
  Age: 35 Year
  Sex: Male
  Weight: 71 kg

DRUGS (1)
  1. ESCITALOPRAM OXALATE [Suspect]
     Active Substance: ESCITALOPRAM OXALATE
     Indication: Completed suicide
     Dosage: 20 DOSAGE FORM
     Route: 048

REACTIONS (2)
  - Drug level above therapeutic [Unknown]
  - Intentional overdose [Unknown]
